APPROVED DRUG PRODUCT: SODIUM CHLORIDE 5% IN PLASTIC CONTAINER
Active Ingredient: SODIUM CHLORIDE
Strength: 5GM/100ML
Dosage Form/Route: INJECTABLE;INJECTION
Application: N019022 | Product #002 | TE Code: AP
Applicant: BAXTER HEALTHCARE CORP
Approved: Nov 1, 1983 | RLD: Yes | RS: No | Type: RX